FAERS Safety Report 11539089 (Version 1)
Quarter: 2015Q3

REPORT INFORMATION
  Report Type: Spontaneous
  Country: US (occurrence: US)
  Receive Date: 20150923
  Receipt Date: 20150923
  Transmission Date: 20151125
  Serious: No
  Sender: FDA-Public Use
  Company Number: US-009507513-1509USA011574

PATIENT
  Age: 22 Year
  Sex: Female
  Weight: 77.98 kg

DRUGS (1)
  1. NEXPLANON [Suspect]
     Active Substance: ETONOGESTREL
     Indication: CONTRACEPTION
     Dosage: EVERY 3 YEARS, IN THE RIGHT ARM
     Route: 059
     Dates: start: 20150817

REACTIONS (2)
  - Menstrual disorder [Unknown]
  - Oligomenorrhoea [Unknown]

NARRATIVE: CASE EVENT DATE: 20150912
